FAERS Safety Report 10960230 (Version 1)
Quarter: 2015Q1

REPORT INFORMATION
  Report Type: Spontaneous
  Country: US (occurrence: None)
  Receive Date: 20150325
  Receipt Date: 20150325
  Transmission Date: 20150721
  Serious: Yes (Hospitalization)
  Sender: FDA-Public Use
  Company Number: 15-03-011

PATIENT
  Age: 23 Year
  Sex: Male
  Weight: 58.06 kg

DRUGS (1)
  1. COLISTIMETHATE [Suspect]
     Active Substance: COLISTIMETHATE SODIUM
     Indication: CYSTIC FIBROSIS
     Dosage: SINGLE INJECTION

REACTIONS (1)
  - Pneumonia [None]

NARRATIVE: CASE EVENT DATE: 20150117
